FAERS Safety Report 18161583 (Version 2)
Quarter: 2020Q3

REPORT INFORMATION
  Report Type: Other
  Country: BR (occurrence: BR)
  Receive Date: 20200817
  Receipt Date: 20200910
  Transmission Date: 20201103
  Serious: Yes (Other)
  Sender: FDA-Public Use
  Company Number: BR-ROCHE-2639507

PATIENT
  Sex: Female
  Weight: 70 kg

DRUGS (6)
  1. ESBRIET [Suspect]
     Active Substance: PIRFENIDONE
     Indication: IDIOPATHIC PULMONARY FIBROSIS
     Dosage: TWO CAPSULE 3 TIMES A DAY
     Route: 048
     Dates: start: 20200527
  2. ESBRIET [Suspect]
     Active Substance: PIRFENIDONE
     Indication: IDIOPATHIC PULMONARY FIBROSIS
     Route: 048
  3. LOSARTAN. [Concomitant]
     Active Substance: LOSARTAN
     Dosage: 1 TABLET IN THE MORNING
  4. CONCARDIO [Concomitant]
     Active Substance: BISOPROLOL FUMARATE
     Dosage: 1 TABLET IN THE MORNING
  5. ESBRIET [Suspect]
     Active Substance: PIRFENIDONE
     Dosage: 1 CAPSULE 3 TIMES A DAY
     Route: 048
  6. OMEPRAZOLE. [Concomitant]
     Active Substance: OMEPRAZOLE
     Dosage: 1 TABLET IN AN EMPTY STOMACH

REACTIONS (8)
  - Nausea [Unknown]
  - Feeding disorder [Recovering/Resolving]
  - Malaise [Recovering/Resolving]
  - Dizziness [Recovering/Resolving]
  - Hypoacusis [Recovering/Resolving]
  - Asphyxia [Recovering/Resolving]
  - Nausea [Recovering/Resolving]
  - Oral mucosal blistering [Recovering/Resolving]
